FAERS Safety Report 6905083-2 (Version None)
Quarter: 2010Q3

REPORT INFORMATION
  Report Type: 
  Country: None (occurrence: None)
  Receive Date: 20100804
  Receipt Date: 20090910
  Transmission Date: 20110219
  Serious: No
  Sender: FDA-Public Use
  Company Number: US-PFIZER INC-2009248767

PATIENT
  Sex: Female
  Weight: 76.19 kg

DRUGS (4)
  1. LYRICA [Suspect]
     Indication: PROCEDURAL PAIN
     Dosage: 50 MG, 2X/DAY
     Dates: start: 20090717, end: 20090719
  2. VALSARTAN [Concomitant]
     Dosage: UNK
  3. HYDROCODONE [Concomitant]
     Indication: PAIN
     Dosage: UNK
  4. WARFARIN [Concomitant]
     Dosage: UNK

REACTIONS (7)
  - AGITATION [None]
  - ANXIETY [None]
  - CRYING [None]
  - DEPRESSION [None]
  - FEELING ABNORMAL [None]
  - NERVOUSNESS [None]
  - STRESS [None]
